FAERS Safety Report 17488380 (Version 1)
Quarter: 2020Q1

REPORT INFORMATION
  Report Type: Spontaneous
  Country: US (occurrence: US)
  Receive Date: 20200302
  Receipt Date: 20200302
  Transmission Date: 20200409
  Serious: Yes (Disabling)
  Sender: FDA-Public Use
  Company Number: None

PATIENT
  Age: 83 Year
  Sex: Female

DRUGS (1)
  1. BEOVU [Suspect]
     Active Substance: BROLUCIZUMAB-DBLL
     Indication: NEOVASCULAR AGE-RELATED MACULAR DEGENERATION
     Dosage: ?          OTHER FREQUENCY:SINGLE USE VIAL;OTHER ROUTE:INTRAVITREAL?
     Dates: start: 20191212, end: 20200129

REACTIONS (2)
  - Retinal artery occlusion [None]
  - Vascular occlusion [None]

NARRATIVE: CASE EVENT DATE: 20200129
